FAERS Safety Report 12437237 (Version 3)
Quarter: 2016Q3

REPORT INFORMATION
  Report Type: Report from Study
  Country: US (occurrence: US)
  Receive Date: 20160606
  Receipt Date: 20160926
  Transmission Date: 20161109
  Serious: Yes (Hospitalization)
  Sender: FDA-Public Use
  Company Number: US-GILEAD-2016-0216949

PATIENT
  Age: 57 Year
  Sex: Female

DRUGS (3)
  1. ADEMPAS [Concomitant]
     Active Substance: RIOCIGUAT
  2. REMODULIN [Concomitant]
     Active Substance: TREPROSTINIL
  3. AMBRISENTAN [Suspect]
     Active Substance: AMBRISENTAN
     Indication: PRODUCT USED FOR UNKNOWN INDICATION
     Dosage: 10 MG, QD
     Route: 065

REACTIONS (3)
  - Device dislocation [Unknown]
  - Device malfunction [Unknown]
  - Catheter placement [Unknown]
